FAERS Safety Report 12076546 (Version 1)
Quarter: 2016Q1

REPORT INFORMATION
  Report Type: Spontaneous
  Country: BR (occurrence: BR)
  Receive Date: 20160215
  Receipt Date: 20160215
  Transmission Date: 20160526
  Serious: Yes (Other)
  Sender: FDA-Public Use
  Company Number: PHHY2016BR018912

PATIENT
  Sex: Female

DRUGS (1)
  1. DICLOFENAC [Suspect]
     Active Substance: DICLOFENAC
     Indication: UTERINE PAIN
     Dosage: 100 MG, QD, FOR 3 DAYS
     Route: 065

REACTIONS (1)
  - Maternal exposure during pregnancy [Unknown]
